FAERS Safety Report 5802110-0 (Version None)
Quarter: 2008Q3

REPORT INFORMATION
  Report Type: 
  Country: None (occurrence: None)
  Receive Date: 20080707
  Receipt Date: 20080630
  Transmission Date: 20090109
  Serious: Yes (Other)
  Sender: FDA-Public Use
  Company Number: PHHY2008FR10861

PATIENT
  Age: 92 Year
  Sex: Female

DRUGS (12)
  1. TEGRETOL [Suspect]
     Indication: AFFECTIVE DISORDER
     Dosage: 200 MG DAILY
  2. TEGRETOL [Suspect]
     Dosage: 400 MG DAILY
  3. TEGRETOL [Suspect]
     Dosage: 200 MG DAILY
  4. LUDIOMIL [Suspect]
     Indication: AFFECTIVE DISORDER
     Dosage: 37.5 MG DAILY
  5. LUDIOMIL [Suspect]
     Dosage: 112.5 MG DAILY
  6. LUDIOMIL [Suspect]
     Dosage: 37.5 MG DAILY
  7. VALIUM [Concomitant]
  8. NOCTRAN [Concomitant]
  9. LEVOTHYROX [Concomitant]
  10. KARDEGIC [Concomitant]
  11. TERCIAN [Concomitant]
  12. PARIET [Concomitant]

REACTIONS (5)
  - BONE FISSURE [None]
  - DRUG DISPENSING ERROR [None]
  - FALL [None]
  - GAIT DISTURBANCE [None]
  - JOINT SWELLING [None]
